FAERS Safety Report 4616773-9 (Version None)
Quarter: 2005Q2

REPORT INFORMATION
  Report Type: 
  Country: None (occurrence: None)
  Receive Date: 20050311
  Receipt Date: 20041223
  Transmission Date: 20051028
  Serious: Yes (Other)
  Sender: FDA-Public Use
  Company Number: 2004-00972

PATIENT
  Age: 63 Year
  Sex: Male
  Weight: 84.4 kg

DRUGS (2)
  1. VELCADE [Suspect]
     Indication: MULTIPLE MYELOMA
     Dosage: 2.00 MG, IV BOLUS
     Route: 040
     Dates: start: 20040101, end: 20041223
  2. DEXAMETHASONE [Concomitant]

REACTIONS (1)
  - CHILLS [None]
